FAERS Safety Report 23301211 (Version 6)
Quarter: 2024Q4

REPORT INFORMATION
  Report Type: Report from Study
  Country: US (occurrence: US)
  Receive Date: 20231215
  Receipt Date: 20241213
  Transmission Date: 20250114
  Serious: No
  Sender: KYOWA
  Company Number: US-KYOWAKIRIN-2023KK019958

PATIENT

DRUGS (10)
  1. BUROSUMAB [Suspect]
     Active Substance: BUROSUMAB
     Indication: Hereditary hypophosphataemic rickets
     Dosage: 45 MG, 1X/4 WEEKS
     Route: 058
     Dates: start: 20231019
  2. BUROSUMAB [Suspect]
     Active Substance: BUROSUMAB
     Dosage: 80 MG, 1X/4 WEEKS
     Route: 058
  3. BUROSUMAB [Suspect]
     Active Substance: BUROSUMAB
     Dosage: 60 MG, 1X/4 WEEKS
     Route: 058
     Dates: start: 202401
  4. BUROSUMAB [Suspect]
     Active Substance: BUROSUMAB
     Indication: Hereditary hypophosphataemic rickets
     Dosage: 80 MG, 1X/2 WEEKS
     Route: 058
  5. BUROSUMAB [Suspect]
     Active Substance: BUROSUMAB
     Dosage: 20 MG, 1X/4 WEEKS
     Route: 058
     Dates: start: 202401
  6. BUROSUMAB [Suspect]
     Active Substance: BUROSUMAB
     Dosage: 2 ML, 1X/4 WEEKS
     Route: 058
  7. BUROSUMAB [Suspect]
     Active Substance: BUROSUMAB
     Indication: Product used for unknown indication
     Dosage: UNK
     Route: 065
  8. BUROSUMAB [Suspect]
     Active Substance: BUROSUMAB
     Dosage: UNK (DOSE REDUCED)
     Route: 065
  9. TESTOSTERONE [Concomitant]
     Active Substance: TESTOSTERONE
     Indication: Product used for unknown indication
     Dosage: UNK
     Route: 065
  10. LISINOPRIL [Concomitant]
     Active Substance: LISINOPRIL
     Indication: Product used for unknown indication
     Dosage: UNK
     Route: 065

REACTIONS (10)
  - Poor quality sleep [Unknown]
  - Sleep disorder [Unknown]
  - Musculoskeletal stiffness [Unknown]
  - Back pain [Unknown]
  - Limb discomfort [Unknown]
  - Muscle spasms [Recovering/Resolving]
  - Restless legs syndrome [Unknown]
  - Injection site pruritus [Unknown]
  - Underdose [Unknown]
  - Product use issue [Unknown]

NARRATIVE: CASE EVENT DATE: 20240101
